FAERS Safety Report 5130465-1 (Version None)
Quarter: 2006Q4

REPORT INFORMATION
  Report Type: 
  Country: None (occurrence: None)
  Receive Date: 20061019
  Receipt Date: 20061005
  Transmission Date: 20070319
  Serious: Yes (Death, Hospitalization)
  Sender: FDA-Public Use
  Company Number: US-AMGEN-US196168

PATIENT
  Age: 59 Year
  Sex: Male

DRUGS (4)
  1. ENBREL [Suspect]
     Indication: DRUG USE FOR UNKNOWN INDICATION
     Route: 065
  2. REMICADE [Suspect]
     Route: 042
  3. PREDNISONE TAB [Concomitant]
     Route: 065
  4. LEFLUNOMIDE [Concomitant]
     Route: 065

REACTIONS (2)
  - INTERSTITIAL LUNG DISEASE [None]
  - PNEUMONITIS [None]
